FAERS Safety Report 6095592-3 (Version None)
Quarter: 2009Q1

REPORT INFORMATION
  Report Type: 
  Country: None (occurrence: None)
  Receive Date: 20090227
  Receipt Date: 20080501
  Transmission Date: 20090719
  Serious: No
  Sender: FDA-Public Use
  Company Number: A0725872A

PATIENT
  Age: 55 Year
  Sex: Male

DRUGS (3)
  1. LAMICTAL [Suspect]
     Indication: PARTIAL SEIZURES
     Dosage: 150MG TWICE PER DAY
     Route: 048
     Dates: start: 20080408, end: 20080423
  2. PHENYTOIN [Concomitant]
  3. TRAMADOL HCL [Concomitant]

REACTIONS (2)
  - PRURITUS [None]
  - URTICARIA [None]
